FAERS Safety Report 6371269-1 (Version None)
Quarter: 2009Q3

REPORT INFORMATION
  Report Type: 
  Country: None (occurrence: None)
  Receive Date: 20090923
  Receipt Date: 20071004
  Transmission Date: 20100115
  Serious: No
  Sender: FDA-Public Use
  Company Number: US-ASTRAZENECA-2007UW05670

PATIENT
  Age: 16256 Day
  Sex: Female
  Weight: 105.7 kg

DRUGS (14)
  1. SEROQUEL [Suspect]
     Indication: DEPRESSION
     Route: 048
     Dates: start: 20040101, end: 20060101
  2. SEROQUEL [Suspect]
     Indication: INSOMNIA
     Route: 048
     Dates: start: 20040101, end: 20060101
  3. SEROQUEL [Suspect]
     Dosage: 25 MG - 200 MG
     Route: 048
     Dates: start: 20051129
  4. SEROQUEL [Suspect]
     Dosage: 25 MG - 200 MG
     Route: 048
     Dates: start: 20051129
  5. GEODON [Suspect]
     Route: 065
     Dates: start: 20060906
  6. ABILIFY [Suspect]
     Route: 065
     Dates: start: 20060901
  7. XANAX [Concomitant]
     Dosage: 0.5 MG - 2 MG
     Route: 065
     Dates: end: 20050415
  8. TAXOL [Concomitant]
     Route: 065
  9. ELAVIL [Concomitant]
     Route: 048
  10. TYLENOL (CAPLET) [Concomitant]
     Indication: PAIN
     Route: 065
  11. AMBIEN CR [Concomitant]
     Indication: BIPOLAR DISORDER
     Route: 065
  12. EFFEXOR [Concomitant]
     Route: 065
  13. TAMOXIFEN CITRATE [Concomitant]
     Dosage: 20 MG- 80 MG
     Route: 048
  14. CYTOXAN [Concomitant]
     Route: 042

REACTIONS (19)
  - ABDOMINAL PAIN [None]
  - ACUTE SINUSITIS [None]
  - BREAST PAIN [None]
  - BRONCHITIS [None]
  - CHEST PAIN [None]
  - COUGH [None]
  - DIABETES MELLITUS [None]
  - DIZZINESS [None]
  - ECZEMA [None]
  - FLANK PAIN [None]
  - GENERAL PHYSICAL HEALTH DETERIORATION [None]
  - GLAUCOMA [None]
  - MUSCLE SPASMS [None]
  - MYALGIA [None]
  - NECK PAIN [None]
  - OROPHARYNGEAL PAIN [None]
  - RHINORRHOEA [None]
  - TINEA PEDIS [None]
  - WEIGHT INCREASED [None]
